FAERS Safety Report 7674136-6 (Version None)
Quarter: 2011Q3

REPORT INFORMATION
  Report Type: 
  Country: None (occurrence: None)
  Receive Date: 20110810
  Receipt Date: 20110727
  Transmission Date: 20111222
  Serious: Yes (Hospitalization, Other)
  Sender: FDA-Public Use
  Company Number: US-ELI_LILLY_AND_COMPANY-US201108000847

PATIENT
  Sex: Female

DRUGS (3)
  1. FORTEO [Suspect]
     Indication: OSTEOPOROSIS
     Dosage: 20 UG, UNKNOWN
     Dates: start: 20070101, end: 20090101
  2. METHOTREXATE [Concomitant]
  3. PREDNISONE [Concomitant]

REACTIONS (7)
  - ARTHRALGIA [None]
  - NAUSEA [None]
  - ARTHROPATHY [None]
  - CATARACT [None]
  - MACULAR DEGENERATION [None]
  - BACK PAIN [None]
  - ANAEMIA [None]
